FAERS Safety Report 16005798 (Version 2)
Quarter: 2019Q4

REPORT INFORMATION
  Report Type: Spontaneous
  Country: FR (occurrence: FR)
  Receive Date: 20190226
  Receipt Date: 20191105
  Transmission Date: 20200122
  Serious: Yes (Hospitalization, Other)
  Sender: FDA-Public Use
  Company Number: FR-SA-2019SA046150

PATIENT
  Age: 51 Year
  Sex: Male
  Weight: 110 kg

DRUGS (5)
  1. METFORMIN HYDROCHLORIDE. [Suspect]
     Active Substance: METFORMIN HYDROCHLORIDE
     Indication: POISONING DELIBERATE
     Dosage: 26 G, TOTAL
     Route: 048
     Dates: start: 20180924, end: 20180924
  2. IRBESARTAN. [Suspect]
     Active Substance: IRBESARTAN
     Indication: POISONING DELIBERATE
     Dosage: 15 DF, TOTAL
     Route: 048
     Dates: start: 20180924, end: 20180924
  3. LOGIMAX [Suspect]
     Active Substance: FELODIPINE\METOPROLOL SUCCINATE
     Indication: POISONING DELIBERATE
     Dosage: UNK UNK, UNK
     Route: 048
     Dates: start: 20180924, end: 20180924
  4. ZOLPIDEM TARTRATE. [Suspect]
     Active Substance: ZOLPIDEM TARTRATE
     Indication: POISONING DELIBERATE
     Dosage: 14 DF, TOTAL
     Route: 048
     Dates: start: 20180924, end: 20180924
  5. AMISULPRIDE [Suspect]
     Active Substance: AMISULPRIDE
     Indication: POISONING DELIBERATE
     Dosage: 4 DF, TOTAL
     Route: 048
     Dates: start: 20180924, end: 20180924

REACTIONS (6)
  - Acute kidney injury [Recovered/Resolved]
  - Disorientation [Recovered/Resolved]
  - Intentional overdose [Unknown]
  - Hyperlactacidaemia [Recovered/Resolved]
  - Hypotension [Recovered/Resolved]
  - Vomiting [Recovered/Resolved]

NARRATIVE: CASE EVENT DATE: 20180924
